FAERS Safety Report 5094300-2 (Version None)
Quarter: 2006Q3

REPORT INFORMATION
  Report Type: 
  Country: None (occurrence: None)
  Receive Date: 20060830
  Receipt Date: 20060830
  Transmission Date: 20061208
  Serious: Yes (Hospitalization, Other)
  Sender: FDA-Public Use
  Company Number: None

PATIENT
  Age: 51 Year
  Sex: Male
  Weight: 89.8122 kg

DRUGS (1)
  1. NIACIN [Suspect]
     Indication: BLOOD CHOLESTEROL INCREASED
     Dosage: ONE TIME ONLY
     Dates: start: 20020320, end: 20020320

REACTIONS (4)
  - BURNING SENSATION [None]
  - HEART RATE INCREASED [None]
  - HYPERTENSION [None]
  - OVERDOSE [None]
